FAERS Safety Report 7884916-X (Version None)
Quarter: 2011Q4

REPORT INFORMATION
  Report Type: 
  Country: None (occurrence: None)
  Receive Date: 20111102
  Receipt Date: 20111021
  Transmission Date: 20120403
  Serious: Yes (Other)
  Sender: FDA-Public Use
  Company Number: US-BAYER-2011-073690

PATIENT
  Age: 36 Year
  Sex: Female
  Weight: 115.65 kg

DRUGS (5)
  1. YAZ [Suspect]
     Indication: PREMENSTRUAL SYNDROME
     Dosage: UNK
     Dates: start: 20070401, end: 20091201
  2. YAZ [Suspect]
     Indication: MENSTRUATION IRREGULAR
  3. PAXIL [Concomitant]
     Dosage: 20 MG, QD
  4. ROLAIDS [Concomitant]
     Indication: DYSPEPSIA
     Dosage: UNK UNK, QD
  5. PREVACID [Concomitant]
     Indication: DYSPEPSIA
     Dosage: UNK UNK, QD

REACTIONS (4)
  - CHOLECYSTECTOMY [None]
  - CHOLECYSTITIS CHRONIC [None]
  - INJURY [None]
  - EMOTIONAL DISTRESS [None]
